FAERS Safety Report 7904255-8 (Version None)
Quarter: 2011Q4

REPORT INFORMATION
  Report Type: 
  Country: None (occurrence: None)
  Receive Date: 20111109
  Receipt Date: 20111101
  Transmission Date: 20120403
  Serious: Yes (Other)
  Sender: FDA-Public Use
  Company Number: JP-PFIZER INC-2011267459

PATIENT
  Age: 38 Year
  Sex: Female

DRUGS (1)
  1. MEDROXYPROGESTERONE ACETATE [Suspect]
     Indication: UTERINE CANCER
     Dosage: 100 MG, 2X/DAY
     Route: 048
     Dates: start: 20110606, end: 20111024

REACTIONS (1)
  - CEREBRAL INFARCTION [None]
